FAERS Safety Report 19017805 (Version 1)
Quarter: 2021Q1

REPORT INFORMATION
  Report Type: Report from Study
  Country: US (occurrence: US)
  Receive Date: 20210317
  Receipt Date: 20210317
  Transmission Date: 20210420
  Serious: Yes (Hospitalization, Other)
  Sender: FDA-Public Use
  Company Number: NVSC2021US033190

PATIENT
  Age: 17 Year
  Sex: Male

DRUGS (11)
  1. INC424A [Suspect]
     Active Substance: RUXOLITINIB
     Indication: ACUTE LYMPHOCYTIC LEUKAEMIA
     Dosage: 90 MG BID
     Route: 048
     Dates: start: 20210105
  2. METHOTREXATE. [Suspect]
     Active Substance: METHOTREXATE
     Indication: B PRECURSOR TYPE ACUTE LEUKAEMIA
     Dosage: 15 MILLIGRAM
     Route: 037
     Dates: start: 20201211
  3. DRONABINOL. [Concomitant]
     Active Substance: DRONABINOL
     Indication: NAUSEA
     Dosage: 5 MG, BID
     Route: 048
     Dates: start: 20201203
  4. VINCRISTINE [Suspect]
     Active Substance: VINCRISTINE
     Indication: B PRECURSOR TYPE ACUTE LEUKAEMIA
     Dosage: 2 MG, ONCE/SINGLE
     Route: 042
     Dates: start: 20201112
  5. PEGASPARGASE [Suspect]
     Active Substance: PEGASPARGASE
     Indication: ACUTE LYMPHOCYTIC LEUKAEMIA
     Dosage: 4,672.5 UNITS
     Route: 042
     Dates: start: 20201116
  6. DAUNORUBICIN [Suspect]
     Active Substance: DAUNORUBICIN
     Indication: ACUTE LYMPHOCYTIC LEUKAEMIA
     Dosage: 12.5 MILLIGRAM, ONCE
     Route: 042
     Dates: start: 20201112
  7. AMLODIPINE [Concomitant]
     Active Substance: AMLODIPINE BESYLATE
     Indication: HYPERTENSION
     Dosage: 5 MG, QD
     Route: 048
     Dates: start: 20201216
  8. GRANISETRON [Concomitant]
     Active Substance: GRANISETRON
     Indication: NAUSEA
     Dosage: 1 MG, ONCE/SINGLE
     Route: 042
     Dates: start: 20201111
  9. LORAZEPAM. [Concomitant]
     Active Substance: LORAZEPAM
     Indication: ANXIETY
     Dosage: 2 MG, Q8PRN
     Route: 048
     Dates: start: 20201120, end: 20210125
  10. DRONABINOL. [Concomitant]
     Active Substance: DRONABINOL
     Indication: VOMITING
  11. GRANISETRON [Concomitant]
     Active Substance: GRANISETRON
     Indication: VOMITING

REACTIONS (8)
  - Diarrhoea [Recovering/Resolving]
  - Pneumothorax [Recovered/Resolved]
  - Erythema [Recovering/Resolving]
  - Febrile neutropenia [Not Recovered/Not Resolved]
  - Clostridium difficile infection [Recovering/Resolving]
  - Staphylococcal infection [Recovering/Resolving]
  - Dehydration [Recovering/Resolving]
  - Chest pain [Recovered/Resolved]

NARRATIVE: CASE EVENT DATE: 20210124
